FAERS Safety Report 6897626-2 (Version None)
Quarter: 2010Q3

REPORT INFORMATION
  Report Type: 
  Country: None (occurrence: None)
  Receive Date: 20100802
  Receipt Date: 20070628
  Transmission Date: 20110219
  Serious: No
  Sender: FDA-Public Use
  Company Number: US-PFIZER INC-2007031471

PATIENT
  Sex: Female
  Weight: 75 kg

DRUGS (11)
  1. LYRICA [Suspect]
     Indication: NERVE INJURY
     Route: 048
     Dates: start: 20061201
  2. LYRICA [Suspect]
     Indication: NERVE ROOT INJURY LUMBAR
  3. LYRICA [Suspect]
     Indication: SPINAL LAMINECTOMY
  4. CITALOPRAM HYDROBROMIDE [Concomitant]
  5. PREMARIN [Concomitant]
  6. INDOCIN [Concomitant]
  7. PROPRANOLOL [Concomitant]
  8. LASIX [Concomitant]
  9. TALWIN NX [Concomitant]
     Indication: PAIN
  10. VALIUM [Concomitant]
  11. ZANAFLEX [Concomitant]

REACTIONS (5)
  - CHEMICAL BURN OF SKIN [None]
  - ERYTHEMA [None]
  - PRURITUS [None]
  - RASH [None]
  - SEDATION [None]
